FAERS Safety Report 8009393-X (Version None)
Quarter: 2011Q4

REPORT INFORMATION
  Report Type: 
  Country: None (occurrence: None)
  Receive Date: 20111227
  Receipt Date: 20111215
  Transmission Date: 20120403
  Serious: Yes (Other)
  Sender: FDA-Public Use
  Company Number: FR-ACTELION-A-CH2011-50134

PATIENT
  Sex: Male
  Weight: 80 kg

DRUGS (4)
  1. ZAVESCA [Suspect]
     Dosage: 100 MG, TID
     Route: 048
     Dates: end: 20110602
  2. OMEPRAZOLE [Concomitant]
  3. ZAVESCA [Suspect]
     Indication: GAUCHER'S DISEASE
     Dosage: 100 MG, BID
     Route: 048
     Dates: start: 20100527
  4. ZAVESCA [Suspect]
     Dosage: 100 MG, BID
     Route: 048
     Dates: start: 20110609, end: 20110616

REACTIONS (4)
  - LIBIDO DECREASED [None]
  - ASTHENIA [None]
  - ERECTILE DYSFUNCTION [None]
  - PLATELET COUNT DECREASED [None]
